FAERS Safety Report 10018404 (Version 2)
Quarter: 2014Q2

REPORT INFORMATION
  Report Type: Spontaneous
  Country: US (occurrence: US)
  Receive Date: 20140318
  Receipt Date: 20140421
  Transmission Date: 20141212
  Serious: Yes (Other)
  Sender: FDA-Public Use
  Company Number: US-SA-2014SA029736

PATIENT
  Age: 66 Year
  Sex: Male

DRUGS (8)
  1. LANTUS [Suspect]
     Indication: TYPE 2 DIABETES MELLITUS
     Dosage: DOSE:60 UNIT(S)
     Route: 058
     Dates: start: 20100204
  2. LANTUS [Suspect]
     Indication: TYPE 2 DIABETES MELLITUS
     Dosage: DOSE:70 UNIT(S)
     Route: 058
  3. CARVEDILOL [Concomitant]
  4. GABAPENTIN [Concomitant]
     Dosage: UPTO 3 TIMES DAILY
  5. CLONAZEPAM [Concomitant]
  6. LISINOPRIL [Concomitant]
  7. SIMVASTATIN [Concomitant]
  8. ASPIRIN [Concomitant]
     Dosage: LOW DOSE

REACTIONS (5)
  - Spinal disorder [Unknown]
  - Inflammation [Unknown]
  - Fall [Unknown]
  - Neuropathy peripheral [Unknown]
  - Gait disturbance [Unknown]
